FAERS Safety Report 12394731 (Version 1)
Quarter: 2016Q2

REPORT INFORMATION
  Report Type: Spontaneous
  Country: US (occurrence: US)
  Receive Date: 20160523
  Receipt Date: 20160523
  Transmission Date: 20160815
  Serious: No
  Sender: FDA-Public Use
  Company Number: US-NOVOPROD-451947

PATIENT
  Age: 14 Year
  Sex: Male

DRUGS (2)
  1. NORDITROPIN [Suspect]
     Active Substance: SOMATROPIN
     Indication: GROWTH HORMONE DEFICIENCY
     Dosage: 2.4 MG, QD
     Route: 058
     Dates: start: 201307, end: 20150529
  2. NORDITROPIN [Suspect]
     Active Substance: SOMATROPIN
     Dosage: 2.4 MG, QD
     Route: 058
     Dates: start: 20150603

REACTIONS (1)
  - Testicular hypertrophy [Not Recovered/Not Resolved]

NARRATIVE: CASE EVENT DATE: 201502
